FAERS Safety Report 7271706-4 (Version None)
Quarter: 2011Q1

REPORT INFORMATION
  Report Type: 
  Country: None (occurrence: None)
  Receive Date: 20110203
  Receipt Date: 20110105
  Transmission Date: 20110831
  Serious: Yes (Other)
  Sender: FDA-Public Use
  Company Number: IE-PFIZER INC-2011024290

PATIENT
  Age: 30 Year
  Sex: Male

DRUGS (1)
  1. PANTOPRAZOLE [Suspect]
     Dosage: 40 MG, DAILY
     Route: 048

REACTIONS (1)
  - HYPOMAGNESAEMIA [None]
